FAERS Safety Report 16609885 (Version 1)
Quarter: 2019Q3

REPORT INFORMATION
  Report Type: Spontaneous
  Country: EE (occurrence: EE)
  Receive Date: 20190722
  Receipt Date: 20190722
  Transmission Date: 20191004
  Serious: Yes (Other)
  Sender: FDA-Public Use
  Company Number: EE-BAYER-2019-131126

PATIENT
  Age: 43 Year
  Sex: Female
  Weight: 67 kg

DRUGS (2)
  1. GADOVIST [Suspect]
     Active Substance: GADOBUTROL
     Indication: SCAN MYOCARDIAL PERFUSION
     Dosage: 14 ML, UNK
     Route: 042
     Dates: start: 20181121, end: 20181121
  2. ADENOSIN LIFE MEDICAL [Suspect]
     Active Substance: ADENOSINE
     Indication: SCAN MYOCARDIAL PERFUSION
     Dosage: 140 ?G/KG, UNK
     Route: 042
     Dates: start: 20181121, end: 20181121

REACTIONS (4)
  - Mental disorder [Recovered/Resolved]
  - Seizure [Recovered/Resolved]
  - Speech disorder [Recovered/Resolved]
  - Panic attack [Recovered/Resolved]

NARRATIVE: CASE EVENT DATE: 20181121
